FAERS Safety Report 7198631-1 (Version None)
Quarter: 2010Q4

REPORT INFORMATION
  Report Type: 
  Country: None (occurrence: None)
  Receive Date: 20101227
  Receipt Date: 20101217
  Transmission Date: 20110411
  Serious: Yes (Hospitalization, Other)
  Sender: FDA-Public Use
  Company Number: US-ABBOTT-10P-163-0692491-00

PATIENT
  Age: 58 Year
  Sex: Female

DRUGS (19)
  1. HUMIRA [Suspect]
     Indication: RHEUMATOID ARTHRITIS
     Route: 058
     Dates: start: 20080101, end: 20091027
  2. HUMIRA [Suspect]
     Indication: PSORIASIS
     Route: 058
     Dates: start: 20100201
  3. COUMADIN [Suspect]
     Indication: CATHETERISATION CARDIAC
     Dosage: ON TUESDAY AND THURSDAY
  4. COUMADIN [Suspect]
     Dosage: ON MON, TUE, WED, SAT AND SUN
  5. LOVENOX [Suspect]
     Indication: CATHETERISATION CARDIAC
     Dosage: INJECTIONS TO ABDOMEN
     Route: 058
     Dates: start: 20091001, end: 20091001
  6. LOVENOX [Suspect]
     Indication: ARTERIAL OCCLUSIVE DISEASE
  7. NITROGLYCERIN [Concomitant]
     Indication: PRODUCT USED FOR UNKNOWN INDICATION
     Dosage: PATCH
     Route: 061
  8. POTASSIUM [Concomitant]
     Indication: PRODUCT USED FOR UNKNOWN INDICATION
     Route: 048
  9. PLAVIX [Concomitant]
     Indication: PRODUCT USED FOR UNKNOWN INDICATION
     Route: 048
  10. VESICARE [Concomitant]
     Indication: PRODUCT USED FOR UNKNOWN INDICATION
     Route: 048
  11. TOPROL-XL [Concomitant]
     Indication: PRODUCT USED FOR UNKNOWN INDICATION
     Route: 048
  12. ASPIRIN [Concomitant]
     Indication: PRODUCT USED FOR UNKNOWN INDICATION
     Route: 048
  13. ISOSORBIDE DINITRATE [Concomitant]
     Indication: PRODUCT USED FOR UNKNOWN INDICATION
     Route: 048
  14. TAZTIA [Concomitant]
     Indication: PRODUCT USED FOR UNKNOWN INDICATION
     Route: 048
  15. OMEPRAZOLE [Concomitant]
     Indication: PRODUCT USED FOR UNKNOWN INDICATION
     Route: 048
  16. CARAFATE [Concomitant]
     Indication: PRODUCT USED FOR UNKNOWN INDICATION
     Dosage: 10 ML
     Route: 048
  17. LASIX [Concomitant]
     Indication: PRODUCT USED FOR UNKNOWN INDICATION
  18. CELEBREX [Concomitant]
     Indication: SWELLING
     Route: 048
  19. HYDROXYZINE [Concomitant]
     Indication: PRURITUS
     Dosage: 1-2 TABLETS DAILY
     Route: 048

REACTIONS (8)
  - ASTHENIA [None]
  - CARDIAC DISORDER [None]
  - CAROTID ARTERY OCCLUSION [None]
  - CORONARY ARTERY OCCLUSION [None]
  - GASTROINTESTINAL HAEMORRHAGE [None]
  - ILL-DEFINED DISORDER [None]
  - PSORIASIS [None]
  - URINARY INCONTINENCE [None]
